FAERS Safety Report 10773767 (Version 2)
Quarter: 2015Q1

REPORT INFORMATION
  Report Type: Report from Study
  Country: BR (occurrence: BR)
  Receive Date: 20150208
  Receipt Date: 20150216
  Transmission Date: 20150721
  Serious: Yes (Other)
  Sender: FDA-Public Use
  Company Number: BR-EMD SERONO-8007535

PATIENT
  Sex: Male

DRUGS (3)
  1. REBIF [Suspect]
     Active Substance: INTERFERON BETA-1A
  2. VENLAFAXINE [Concomitant]
     Active Substance: VENLAFAXINE HYDROCHLORIDE
     Indication: PRODUCT USED FOR UNKNOWN INDICATION
  3. REBIF [Suspect]
     Active Substance: INTERFERON BETA-1A
     Indication: SECONDARY PROGRESSIVE MULTIPLE SCLEROSIS
     Dates: start: 20140331, end: 20141227

REACTIONS (5)
  - Gamma-glutamyltransferase increased [Unknown]
  - Blood triglycerides increased [Unknown]
  - Off label use [Unknown]
  - Drug ineffective [Unknown]
  - Multiple sclerosis relapse [Unknown]
